FAERS Safety Report 13833952 (Version 2)
Quarter: 2017Q3

REPORT INFORMATION
  Report Type: Spontaneous
  Country: AU (occurrence: AU)
  Receive Date: 20170804
  Receipt Date: 20170825
  Transmission Date: 20171127
  Serious: Yes (Other)
  Sender: FDA-Public Use
  Company Number: AU-B.I. PHARMACEUTICALS,INC./RIDGEFIELD-2017-BI-042329

PATIENT
  Age: 62 Year
  Sex: Female

DRUGS (4)
  1. MICARDIS [Suspect]
     Active Substance: TELMISARTAN
     Indication: PRODUCT USED FOR UNKNOWN INDICATION
     Route: 065
     Dates: start: 2004
  2. MICARDIS [Suspect]
     Active Substance: TELMISARTAN
     Dates: start: 20170727
  3. MICARDIS PLUS [Suspect]
     Active Substance: HYDROCHLOROTHIAZIDE\TELMISARTAN
     Indication: PRODUCT USED FOR UNKNOWN INDICATION
     Route: 065
  4. MICARDIS [Suspect]
     Active Substance: TELMISARTAN
     Route: 065

REACTIONS (10)
  - Endometriosis [Unknown]
  - Blood pressure increased [Unknown]
  - Intentional overdose [Unknown]
  - Lymphoma [Recovered/Resolved]
  - Stent placement [Unknown]
  - Epistaxis [Unknown]
  - Fibromyalgia [Unknown]
  - Renal disorder [Unknown]
  - Hysterectomy [Unknown]
  - Dizziness [Unknown]

NARRATIVE: CASE EVENT DATE: 2005
